FAERS Safety Report 8034492-6 (Version None)
Quarter: 2012Q1

REPORT INFORMATION
  Report Type: 
  Country: None (occurrence: None)
  Receive Date: 20120110
  Receipt Date: 20120105
  Transmission Date: 20120608
  Serious: Yes (Disabling, Other)
  Sender: FDA-Public Use
  Company Number: US-PFIZER INC-2012003499

PATIENT
  Sex: Male

DRUGS (7)
  1. VIAGRA [Suspect]
     Dosage: UNK
  2. ZOCOR [Concomitant]
  3. TIAZAC [Concomitant]
  4. ZESTRIL [Concomitant]
  5. NORVASC [Concomitant]
  6. CLONIDINE [Concomitant]
  7. PREDNISONE [Concomitant]

REACTIONS (1)
  - RENAL CANCER METASTATIC [None]
